FAERS Safety Report 17166574 (Version 1)
Quarter: 2019Q4

REPORT INFORMATION
  Report Type: Spontaneous
  Country: FI (occurrence: FI)
  Receive Date: 20191217
  Receipt Date: 20191217
  Transmission Date: 20200122
  Serious: Yes (Other)
  Sender: FDA-Public Use
  Company Number: FI-PFIZER INC-2019536623

PATIENT
  Age: 41 Year
  Sex: Female
  Weight: 80 kg

DRUGS (10)
  1. ATORVASTATIN CALCIUM. [Suspect]
     Active Substance: ATORVASTATIN CALCIUM
     Indication: HYPERCHOLESTEROLAEMIA
     Dosage: UNK
  2. SIMVASTATIN. [Suspect]
     Active Substance: SIMVASTATIN
     Indication: HYPERCHOLESTEROLAEMIA
     Dosage: UNK
  3. FLUVASTATIN SODIUM. [Suspect]
     Active Substance: FLUVASTATIN SODIUM
     Indication: HYPERCHOLESTEROLAEMIA
     Dosage: UNK
  4. EZETIMIBE. [Suspect]
     Active Substance: EZETIMIBE
     Indication: HYPERCHOLESTEROLAEMIA
     Dosage: UNK
  5. ROSUVASTATIN. [Suspect]
     Active Substance: ROSUVASTATIN
     Indication: HYPERCHOLESTEROLAEMIA
     Dosage: UNK
  6. ARMOLIPID PLUS [Suspect]
     Active Substance: DIETARY SUPPLEMENT
     Indication: HYPERCHOLESTEROLAEMIA
     Dosage: UNK
  7. KALCIPOS D [Concomitant]
     Active Substance: CALCIUM CARBONATE\CHOLECALCIFEROL
     Dosage: 1 DF, 1X/DAY
  8. LANTUS [Concomitant]
     Active Substance: INSULIN GLARGINE
     Dosage: 60 UNITS A DAY
  9. JANUVIA [Suspect]
     Active Substance: SITAGLIPTIN PHOSPHATE
     Indication: TYPE 2 DIABETES MELLITUS
     Dosage: 1X1/ 100MG ONCE A DAY
     Route: 048
     Dates: end: 20181008
  10. PANADOL FORTE [PARACETAMOL] [Concomitant]
     Dosage: UNK UNK, AS NEEDED

REACTIONS (16)
  - Arcus lipoides [Unknown]
  - Diabetes mellitus inadequate control [Recovered/Resolved]
  - Cardiac failure chronic [Not Recovered/Not Resolved]
  - Dyslipidaemia [Unknown]
  - Adverse drug reaction [Recovered/Resolved]
  - Atrial fibrillation [Unknown]
  - Basedow^s disease [Unknown]
  - Left ventricular dysfunction [Recovering/Resolving]
  - Hypertension [Recovering/Resolving]
  - Diabetic retinopathy [Unknown]
  - Cerebral infarction [Recovered/Resolved]
  - Myalgia [Recovered/Resolved]
  - Myocardial infarction [Recovered/Resolved with Sequelae]
  - Hypothyroidism [Unknown]
  - Coronary artery disease [Recovering/Resolving]
  - Central obesity [Recovered/Resolved]

NARRATIVE: CASE EVENT DATE: 1998
